FAERS Safety Report 6025600-7 (Version None)
Quarter: 2008Q4

REPORT INFORMATION
  Report Type: 
  Country: None (occurrence: None)
  Receive Date: 20081231
  Receipt Date: 20081219
  Transmission Date: 20090506
  Serious: Yes (Other)
  Sender: FDA-Public Use
  Company Number: ES-B.I. PHARMACEUTICALS,INC./RIDGEFIELD-2008-DE-07889GD

PATIENT

DRUGS (2)
  1. TIPRANAVIR [Suspect]
     Indication: HIV INFECTION
     Dosage: TIPRANAVIR 1 G/RITONAVIR 400 MG
  2. ANTIRETROVIRAL DRUGS [Concomitant]
     Indication: HIV INFECTION

REACTIONS (2)
  - ASCITES [None]
  - HEPATIC CIRRHOSIS [None]
